FAERS Safety Report 5864086-X (Version None)
Quarter: 2008Q3

REPORT INFORMATION
  Report Type: 
  Country: None (occurrence: None)
  Receive Date: 20080829
  Receipt Date: 20080820
  Transmission Date: 20090109
  Serious: Yes (Other)
  Sender: FDA-Public Use
  Company Number: US-JNJFOC-20080805578

PATIENT
  Sex: Male

DRUGS (3)
  1. PREZISTA [Suspect]
     Indication: HIV INFECTION
     Route: 048
  2. INTELENCE [Suspect]
     Indication: HIV INFECTION
     Route: 048
  3. ISENTRESS [Suspect]
     Indication: HIV INFECTION

REACTIONS (2)
  - LIVER DISORDER [None]
  - RASH [None]
